FAERS Safety Report 8177561-2 (Version None)
Quarter: 2012Q1

REPORT INFORMATION
  Report Type: 
  Country: None (occurrence: None)
  Receive Date: 20120301
  Receipt Date: 20120221
  Transmission Date: 20120608
  Serious: Yes (Hospitalization)
  Sender: FDA-Public Use
  Company Number: ES-JNJFOC-20120212396

PATIENT

DRUGS (10)
  1. CORTICOSTEROID [Concomitant]
     Route: 048
  2. IMMUNOSUPPRESSANT [Concomitant]
     Route: 065
  3. CYCLOSPORINE [Concomitant]
     Route: 065
  4. IMMUNE GLOBULIN (HUMAN) [Concomitant]
     Route: 042
  5. CYCLOPHOSPHAMIDE [Concomitant]
     Route: 065
  6. INFLIXIMAB, RECOMBINANT [Suspect]
     Indication: AUTOIMMUNE DISORDER
     Route: 042
  7. MYCOPHENOLATE MOFETIL [Concomitant]
     Route: 065
  8. PLASMA [Concomitant]
     Route: 065
  9. AZATHIOPRINE [Concomitant]
     Route: 065
  10. METHOTREXATE [Concomitant]
     Route: 065

REACTIONS (2)
  - OFF LABEL USE [None]
  - INFECTION [None]
